FAERS Safety Report 6938651-2 (Version None)
Quarter: 2010Q3

REPORT INFORMATION
  Report Type: 
  Country: None (occurrence: None)
  Receive Date: 20100820
  Receipt Date: 20100806
  Transmission Date: 20110219
  Serious: Yes (Hospitalization)
  Sender: FDA-Public Use
  Company Number: JPI-P-005139

PATIENT
  Age: 28 Year
  Sex: Female
  Weight: 71.7 kg

DRUGS (2)
  1. XYREM [Suspect]
     Indication: NARCOLEPSY
     Dosage: ORAL
     Route: 048
     Dates: end: 20081001
  2. PRENATAL VITAMINS [Concomitant]

REACTIONS (4)
  - DIZZINESS [None]
  - DRUG EXPOSURE DURING PREGNANCY [None]
  - PALPITATIONS [None]
  - TACHYCARDIA [None]
